FAERS Safety Report 15390215 (Version 1)
Quarter: 2018Q3

REPORT INFORMATION
  Report Type: Report from Study
  Country: BR (occurrence: BR)
  Receive Date: 20180917
  Receipt Date: 20180917
  Transmission Date: 20181010
  Serious: Yes (Other)
  Sender: FDA-Public Use
  Company Number: PHHY2017BR110891

PATIENT
  Sex: Female
  Weight: 85 kg

DRUGS (13)
  1. ZETRON [Concomitant]
     Indication: DEPRESSION
     Dosage: 1 DF, QD
     Route: 048
  2. VELIJA [Concomitant]
     Active Substance: DULOXETINE HYDROCHLORIDE
     Indication: DEPRESSION
     Dosage: 1 DF, QD
     Route: 048
  3. ALBUTRIM [Concomitant]
     Indication: DEPRESSION
     Route: 065
  4. COSENTYX [Suspect]
     Active Substance: SECUKINUMAB
     Dosage: 150 MG, QMO
     Route: 058
     Dates: start: 20171023
  5. SULFASALAZINE. [Concomitant]
     Active Substance: SULFASALAZINE
     Indication: ANKYLOSING SPONDYLITIS
     Dosage: 6 DF, QD
     Route: 048
  6. COSENTYX [Suspect]
     Active Substance: SECUKINUMAB
     Dosage: 150 MG, QMO
     Route: 058
     Dates: start: 201707
  7. DERMOSALIC [Concomitant]
     Indication: PSORIASIS
     Route: 065
  8. COSENTYX [Suspect]
     Active Substance: SECUKINUMAB
     Dosage: 150 MG, QMO
     Route: 058
     Dates: start: 20180726
  9. FLUCONAZOLE. [Suspect]
     Active Substance: FLUCONAZOLE
     Indication: PRODUCT USED FOR UNKNOWN INDICATION
     Route: 065
  10. PREGABALIN. [Concomitant]
     Active Substance: PREGABALIN
     Indication: FIBROMYALGIA
     Dosage: 2 DF, QD
     Route: 048
  11. DIMORF [Concomitant]
     Active Substance: MORPHINE SULFATE
     Indication: PAIN
     Dosage: UNK
     Route: 048
  12. COSENTYX [Suspect]
     Active Substance: SECUKINUMAB
     Indication: ANKYLOSING SPONDYLITIS
     Dosage: 150 MG, QW
     Route: 058
  13. VELIJA [Concomitant]
     Active Substance: DULOXETINE HYDROCHLORIDE
     Indication: PAIN

REACTIONS (12)
  - Haemorrhoids [Recovering/Resolving]
  - Musculoskeletal pain [Recovering/Resolving]
  - Tongue disorder [Not Recovered/Not Resolved]
  - Plicated tongue [Not Recovered/Not Resolved]
  - Weight increased [Unknown]
  - Spinal pain [Recovering/Resolving]
  - Tongue discolouration [Not Recovered/Not Resolved]
  - Arthralgia [Recovering/Resolving]
  - Pain in extremity [Not Recovered/Not Resolved]
  - Bone pain [Recovering/Resolving]
  - Pain [Not Recovered/Not Resolved]
  - Neck pain [Recovering/Resolving]
